FAERS Safety Report 6052254-6 (Version None)
Quarter: 2009Q1

REPORT INFORMATION
  Report Type: 
  Country: None (occurrence: None)
  Receive Date: 20090121
  Receipt Date: 20090112
  Transmission Date: 20090719
  Serious: Yes (Death)
  Sender: FDA-Public Use
  Company Number: GXKR2009BR00678

PATIENT
  Age: 55 Year
  Sex: Male

DRUGS (3)
  1. DEXAMETHASONE [Suspect]
     Indication: MULTIPLE MYELOMA
  2. DOXORUBICIN HCL [Concomitant]
     Indication: MULTIPLE MYELOMA
  3. VINCRISTINE [Suspect]
     Indication: MULTIPLE MYELOMA

REACTIONS (27)
  - ABDOMINAL PAIN [None]
  - ACUTE RESPIRATORY FAILURE [None]
  - ASTHENIA [None]
  - BRAIN OEDEMA [None]
  - DEHYDRATION [None]
  - DISORIENTATION [None]
  - EOSINOPHILIA [None]
  - GASTRIC INFECTION [None]
  - GASTRIC MUCOSAL HYPERTROPHY [None]
  - GASTRITIS HELMINTHIC [None]
  - GASTROINTESTINAL EROSION [None]
  - GASTROINTESTINAL INFLAMMATION [None]
  - GASTROINTESTINAL OEDEMA [None]
  - HEADACHE [None]
  - HEPATIC INFECTION HELMINTHIC [None]
  - HEPATIC STEATOSIS [None]
  - LUNG INFECTION [None]
  - LYMPHANGITIS [None]
  - MALNUTRITION [None]
  - MENINGITIS [None]
  - OLIGURIA [None]
  - PARASITIC GASTROENTERITIS [None]
  - PULMONARY CONGESTION [None]
  - PULMONARY HAEMORRHAGE [None]
  - SEPTIC SHOCK [None]
  - SKIN HYPERPIGMENTATION [None]
  - STRONGYLOIDIASIS [None]
